FAERS Safety Report 7732883-1 (Version None)
Quarter: 2011Q3

REPORT INFORMATION
  Report Type: 
  Country: None (occurrence: None)
  Receive Date: 20110901
  Receipt Date: 20110824
  Transmission Date: 20111222
  Serious: Yes (Death)
  Sender: FDA-Public Use
  Company Number: 2011081M002077

PATIENT
  Age: 9 Year
  Sex: Male

DRUGS (1)
  1. INTERFERON GAMMA NOS [Suspect]
     Indication: CHRONIC GRANULOMATOUS DISEASE

REACTIONS (3)
  - PURULENCE [None]
  - PERICARDITIS [None]
  - ASPERGILLUS TEST POSITIVE [None]
